FAERS Safety Report 10708994 (Version 1)
Quarter: 2015Q1

REPORT INFORMATION
  Report Type: Spontaneous
  Country: CA (occurrence: CA)
  Receive Date: 20150114
  Receipt Date: 20150114
  Transmission Date: 20150721
  Serious: Yes (Other)
  Sender: FDA-Public Use
  Company Number: CA-ROCHE-1520146

PATIENT
  Age: 53 Year
  Sex: Female

DRUGS (6)
  1. SOVALDI [Suspect]
     Active Substance: SOFOSBUVIR
     Indication: CHRONIC HEPATITIS C
     Route: 065
  2. GALEXOS [Suspect]
     Active Substance: SIMEPREVIR
     Route: 048
  3. GALEXOS [Suspect]
     Active Substance: SIMEPREVIR
     Indication: CHRONIC HEPATITIS C
     Route: 048
  4. RIBAVIRIN. [Suspect]
     Active Substance: RIBAVIRIN
     Indication: CHRONIC HEPATITIS C
     Route: 065
  5. SOVALDI [Suspect]
     Active Substance: SOFOSBUVIR
     Route: 065
  6. GALEXOS [Suspect]
     Active Substance: SIMEPREVIR
     Route: 048

REACTIONS (3)
  - Encephalopathy [Recovered/Resolved]
  - Overdose [Unknown]
  - Off label use [Unknown]
